FAERS Safety Report 9521486 (Version 1)
Quarter: 2013Q3

REPORT INFORMATION
  Report Type: Spontaneous
  Country: TR (occurrence: TR)
  Receive Date: 20130913
  Receipt Date: 20130913
  Transmission Date: 20140515
  Serious: Yes (Hospitalization)
  Sender: FDA-Public Use
  Company Number: TR-MERCK-1309TUR003269

PATIENT
  Age: 52 Year
  Sex: Male
  Weight: 69 kg

DRUGS (3)
  1. TEMODAL [Suspect]
     Indication: GLIOBLASTOMA MULTIFORME
     Dosage: 75MG/M2/DAY; DAILY DOSE: 135MG
     Route: 048
     Dates: start: 20130430, end: 20130610
  2. KORDEXA [Concomitant]
     Indication: OEDEMA
     Dosage: 8 MG
     Route: 048
     Dates: start: 20130420, end: 20130706
  3. KYTRIL [Concomitant]
     Indication: VOMITING
     Dosage: UNK
     Route: 048
     Dates: start: 20130430, end: 20130610

REACTIONS (1)
  - Liver injury [Recovering/Resolving]
